FAERS Safety Report 5515660-1 (Version None)
Quarter: 2007Q4

REPORT INFORMATION
  Report Type: 
  Country: None (occurrence: None)
  Receive Date: 20071113
  Receipt Date: 20070802
  Transmission Date: 20080405
  Serious: No
  Sender: FDA-Public Use
  Company Number: A0667888A

PATIENT
  Age: 59 Year
  Sex: Male

DRUGS (6)
  1. COREG [Suspect]
     Indication: ATRIAL FIBRILLATION
     Dosage: 12.5MG TWICE PER DAY
     Route: 048
     Dates: start: 20070709, end: 20070727
  2. COUMADIN [Concomitant]
  3. ASPIRIN [Concomitant]
  4. LISINOPRIL [Concomitant]
  5. LASIX [Concomitant]
  6. TYLENOL [Concomitant]

REACTIONS (1)
  - FATIGUE [None]
